FAERS Safety Report 6262418-4 (Version None)
Quarter: 2009Q3

REPORT INFORMATION
  Report Type: 
  Country: None (occurrence: None)
  Receive Date: 20090709
  Receipt Date: 20090627
  Transmission Date: 20100115
  Serious: Yes (Other)
  Sender: FDA-Public Use
  Company Number: US-ROCHE-641249

PATIENT
  Sex: Female

DRUGS (2)
  1. PEGASYS [Suspect]
     Indication: HEPATITIS C
     Dosage: FORM: PRE-FILLED SYRINGE (PFS)
     Route: 065
     Dates: start: 20090604
  2. COPEGUS [Suspect]
     Indication: HEPATITIS C
     Route: 065
     Dates: start: 20090604

REACTIONS (9)
  - CHEST DISCOMFORT [None]
  - CONVULSION [None]
  - COUGH [None]
  - DECREASED APPETITE [None]
  - INSOMNIA [None]
  - NAUSEA [None]
  - PYREXIA [None]
  - THROAT IRRITATION [None]
  - VOMITING [None]
